FAERS Safety Report 8833845 (Version 1)
Quarter: 2012Q4

REPORT INFORMATION
  Report Type: 
  Country: US (occurrence: US)
  Receive Date: 20121011
  Receipt Date: 20121011
  Transmission Date: 20130627
  Serious: No
  Sender: FDA-Public Use
  Company Number: US-009507513-1209USA007106

PATIENT
  Age: 37 Year
  Sex: Female

DRUGS (6)
  1. PROVENTIL [Suspect]
     Route: 055
  2. DEPO-PROVERA [Concomitant]
     Dosage: 150 mg, Q 3 MONTHS
     Route: 030
     Dates: start: 20120801
  3. VENTOLIN (ALBUTEROL SULFATE) [Suspect]
     Route: 055
  4. WELLBUTRIN [Concomitant]
  5. AMBILAN BID [Concomitant]
     Indication: RESPIRATORY DISORDER
  6. VISTARIL [Concomitant]

REACTIONS (2)
  - Drug hypersensitivity [Unknown]
  - Underdose [Unknown]
